FAERS Safety Report 6317776-9 (Version None)
Quarter: 2009Q3

REPORT INFORMATION
  Report Type: 
  Country: None (occurrence: None)
  Receive Date: 20090821
  Receipt Date: 20090812
  Transmission Date: 20100115
  Serious: Yes (Hospitalization)
  Sender: FDA-Public Use
  Company Number: CA-JNJFOC-20090803951

PATIENT

DRUGS (1)
  1. REMICADE [Suspect]
     Indication: COLITIS ULCERATIVE
     Dosage: FOR 1+  YEARS
     Route: 042

REACTIONS (5)
  - DIZZINESS [None]
  - INFUSION RELATED REACTION [None]
  - MYOCARDIAL INFARCTION [None]
  - ROAD TRAFFIC ACCIDENT [None]
  - SYNCOPE [None]
